FAERS Safety Report 6456419-0 (Version None)
Quarter: 2009Q4

REPORT INFORMATION
  Report Type: 
  Country: None (occurrence: None)
  Receive Date: 20091125
  Receipt Date: 20091116
  Transmission Date: 20100525
  Serious: Yes (Hospitalization, Other)
  Sender: FDA-Public Use
  Company Number: US-PFIZER INC-2009300042

PATIENT
  Sex: Female
  Weight: 54.422 kg

DRUGS (3)
  1. LYRICA [Suspect]
     Indication: PAIN IN EXTREMITY
     Dosage: 150 MG, 2X/DAY
     Dates: start: 20050610
  2. LYRICA [Suspect]
     Indication: BURNING SENSATION
  3. TEMAZEPAM [Concomitant]
     Dosage: UNK

REACTIONS (11)
  - ALOPECIA [None]
  - BLINDNESS TRANSIENT [None]
  - CATARACT [None]
  - CEREBROVASCULAR ACCIDENT [None]
  - DEHYDRATION [None]
  - DIZZINESS [None]
  - HYPERHIDROSIS [None]
  - HYPERTENSION [None]
  - MACULAR DEGENERATION [None]
  - MALAISE [None]
  - NAUSEA [None]
